FAERS Safety Report 11796107 (Version 2)
Quarter: 2016Q2

REPORT INFORMATION
  Report Type: Spontaneous
  Country: US (occurrence: US)
  Receive Date: 20151203
  Receipt Date: 20160519
  Transmission Date: 20160815
  Serious: No
  Sender: FDA-Public Use
  Company Number: US-APOTEX-2015AP009639

PATIENT
  Sex: Female

DRUGS (4)
  1. FENTANYL TRANSDERMAL SYSTEM [Suspect]
     Active Substance: FENTANYL
     Indication: PAIN
     Dosage: ONE 75 MCG PATCH EVERY 72 HOURS
     Route: 065
  2. FENTANYL TRANSDERMAL SYSTEM [Suspect]
     Active Substance: FENTANYL
     Dosage: ONE 75 MCG PATCH EVERY 72 HOURS
     Route: 065
  3. MORPHINE [Concomitant]
     Active Substance: MORPHINE
     Indication: PAIN
     Dosage: 2 DF, QID
  4. FENTANYL TRANSDERMAL SYSTEM [Suspect]
     Active Substance: FENTANYL
     Dosage: ONE 75 MCG PATCH EVERY 72 HOURS
     Route: 065

REACTIONS (6)
  - Product substitution issue [Unknown]
  - Product odour abnormal [Unknown]
  - Product adhesion issue [Unknown]
  - Drug ineffective [Unknown]
  - Skin odour abnormal [Unknown]
  - Application site erythema [Unknown]
